FAERS Safety Report 6889239-3 (Version None)
Quarter: 2010Q3

REPORT INFORMATION
  Report Type: 
  Country: None (occurrence: None)
  Receive Date: 20100730
  Receipt Date: 20100722
  Transmission Date: 20110219
  Serious: Yes (Hospitalization)
  Sender: FDA-Public Use
  Company Number: US-ABBOTT-10P-163-0656027-00

PATIENT
  Age: 44 Year
  Sex: Female

DRUGS (14)
  1. HUMIRA [Suspect]
     Indication: CROHN'S DISEASE
     Dates: start: 20100702
  2. SEROQUEL [Concomitant]
     Indication: ANXIETY
  3. SEROQUEL [Concomitant]
     Indication: DEPRESSION
  4. PROZAC [Concomitant]
     Indication: ANXIETY
     Dosage: TAKEN IN THE AM
  5. PROZAC [Concomitant]
     Indication: DEPRESSION
  6. NEXIUM [Concomitant]
     Indication: GASTROOESOPHAGEAL REFLUX DISEASE
     Dosage: TAKEN IN THE AM
  7. REQUIP [Concomitant]
     Indication: RESTLESS LEGS SYNDROME
     Dosage: TAKEN AT BEDTIME
  8. AMBIEN [Concomitant]
     Indication: SLEEP DISORDER THERAPY
     Dosage: TAKEN AT BEDTIME
  9. ZOFRAN [Concomitant]
     Indication: NAUSEA
     Dosage: Q 8 HOURS, UP TO 3 DAILY AS NEEDED
  10. ZOFRAN [Concomitant]
     Indication: VOMITING
  11. LOMOTIL [Concomitant]
     Indication: PRODUCT USED FOR UNKNOWN INDICATION
     Dosage: 1 TSP FOUR TIMES A DAY AS NEEDED
  12. ASPIRIN [Concomitant]
     Indication: CHEST PAIN
  13. BENADRYL [Concomitant]
     Indication: HYPERSENSITIVITY
     Dosage: TAKEN EVERY MORNING AND PRN
  14. LODODERN LICDOCIANE PATCH [Concomitant]
     Indication: BACK PAIN

REACTIONS (13)
  - ABNORMAL BEHAVIOUR [None]
  - AMNESIA [None]
  - DYSKINESIA [None]
  - FATIGUE [None]
  - HEART RATE INCREASED [None]
  - INSOMNIA [None]
  - MIGRAINE [None]
  - MUSCLE TWITCHING [None]
  - PALPITATIONS [None]
  - PHARYNGEAL OEDEMA [None]
  - RESTLESSNESS [None]
  - TREMOR [None]
  - VISION BLURRED [None]
